FAERS Safety Report 25120528 (Version 1)
Quarter: 2025Q1

REPORT INFORMATION
  Report Type: Spontaneous
  Country: AU (occurrence: AU)
  Receive Date: 20250325
  Receipt Date: 20250325
  Transmission Date: 20250409
  Serious: Yes (Hospitalization)
  Sender: GE HEALTHCARE
  Company Number: AU-GE HEALTHCARE-2025CSU003487

PATIENT
  Age: 66 Year
  Sex: Male
  Weight: 86 kg

DRUGS (1)
  1. CLARISCAN [Suspect]
     Active Substance: GADOTERATE MEGLUMINE
     Indication: Magnetic resonance imaging pancreas
     Route: 065
     Dates: start: 20250320

REACTIONS (4)
  - Hypoaesthesia oral [Recovered/Resolved]
  - Dyspnoea [Recovered/Resolved]
  - Sneezing [Recovered/Resolved]
  - Rash macular [Recovered/Resolved]

NARRATIVE: CASE EVENT DATE: 20250320
